FAERS Safety Report 7089365-2 (Version None)
Quarter: 2010Q4

REPORT INFORMATION
  Report Type: 
  Country: None (occurrence: None)
  Receive Date: 20101108
  Receipt Date: 20101104
  Transmission Date: 20110411
  Serious: Yes (Other)
  Sender: FDA-Public Use
  Company Number: CHPA2010DE17263

PATIENT
  Sex: Female

DRUGS (2)
  1. NICOTINELL TTS 30 (NCH) [Suspect]
     Indication: SMOKING CESSATION THERAPY
     Dosage: UNK, UNK
     Route: 062
  2. NICOTINELL TTS 20 (NCH) [Suspect]
     Indication: SMOKING CESSATION THERAPY
     Dosage: UNK, UNK
     Route: 062

REACTIONS (3)
  - APPLICATION SITE URTICARIA [None]
  - ERYTHEMA [None]
  - SKIN REACTION [None]
